FAERS Safety Report 5622529-0 (Version None)
Quarter: 2008Q1

REPORT INFORMATION
  Report Type: 
  Country: None (occurrence: None)
  Receive Date: 20080211
  Receipt Date: 20080130
  Transmission Date: 20080703
  Serious: Yes (Other)
  Sender: FDA-Public Use
  Company Number: US-PFIZER INC-2008011615

PATIENT
  Sex: Male
  Weight: 100 kg

DRUGS (8)
  1. CHANTIX [Suspect]
     Indication: SMOKING CESSATION THERAPY
  2. OMEPRAZOLE [Concomitant]
  3. SUCRALFATE [Concomitant]
  4. ASPIRIN [Concomitant]
  5. ATENOLOL [Concomitant]
  6. GEMFIBROZIL [Concomitant]
  7. LISINOPRIL [Concomitant]
  8. FLUVOXAMINE MALEATE [Concomitant]

REACTIONS (1)
  - HAEMATOCHEZIA [None]
